FAERS Safety Report 10430773 (Version 1)
Quarter: 2014Q3

REPORT INFORMATION
  Report Type: Report from Study
  Country: TW (occurrence: TW)
  Receive Date: 20140904
  Receipt Date: 20140904
  Transmission Date: 20150326
  Serious: Yes (Hospitalization)
  Sender: FDA-Public Use
  Company Number: PHHY2014TW110391

PATIENT
  Age: 41 Year
  Sex: Male

DRUGS (4)
  1. FLUOROURACIL. [Suspect]
     Active Substance: FLUOROURACIL
     Indication: COLORECTAL CANCER METASTATIC
     Dosage: 4500 MG 1 IN EVERY 2 WEEKS
     Route: 042
     Dates: start: 20140318, end: 20140624
  2. BEVACIZUMAB [Suspect]
     Active Substance: BEVACIZUMAB
     Indication: COLORECTAL CANCER METASTATIC
     Dosage: 300 MG 1 IN EVERY 2 WEEKS
     Route: 042
     Dates: start: 20140407, end: 20140623
  3. IRINOTECAN [Suspect]
     Active Substance: IRINOTECAN
     Indication: COLORECTAL CANCER METASTATIC
     Dosage: 280 MG, UNK
     Route: 042
     Dates: start: 20140318, end: 20140623
  4. CALCIUM FOLINATE [Suspect]
     Active Substance: LEUCOVORIN CALCIUM
     Indication: COLORECTAL CANCER METASTATIC
     Dosage: 640 MG 1 IN 2 WEEK
     Route: 042
     Dates: start: 20140318, end: 20140623

REACTIONS (4)
  - Pneumoperitoneum [Recovering/Resolving]
  - Abdominal pain [Recovering/Resolving]
  - Pyrexia [Recovering/Resolving]
  - Rectal perforation [Recovering/Resolving]

NARRATIVE: CASE EVENT DATE: 20140708
